FAERS Safety Report 20727398 (Version 1)
Quarter: 2022Q2

REPORT INFORMATION
  Report Type: Spontaneous
  Country: US (occurrence: None)
  Receive Date: 20220419
  Receipt Date: 20220419
  Transmission Date: 20220721
  Serious: No
  Sender: FDA-Public Use
  Company Number: US-ROCHE-2967057

PATIENT
  Age: 45 Year
  Sex: Female
  Weight: 47.670 kg

DRUGS (1)
  1. XOFLUZA [Suspect]
     Active Substance: BALOXAVIR MARBOXIL
     Indication: Antiviral prophylaxis
     Dosage: 80 MG SINGLE DOSE
     Route: 048

REACTIONS (2)
  - Medication error [Unknown]
  - No adverse event [Unknown]
